FAERS Safety Report 6326251-7 (Version None)
Quarter: 2009Q3

REPORT INFORMATION
  Report Type: 
  Country: None (occurrence: None)
  Receive Date: 20090824
  Receipt Date: 20090814
  Transmission Date: 20100115
  Serious: Yes (Other)
  Sender: FDA-Public Use
  Company Number: US-JNJCH-2009022138

PATIENT
  Age: 43 Year
  Sex: Female
  Weight: 59 kg

DRUGS (5)
  1. LISTERINE SMART RINSE BERRY SHIELD [Suspect]
     Indication: DENTAL DISORDER PROPHYLAXIS
     Dosage: TEXT:10 ML ONCE AT NIGHT
     Route: 048
     Dates: start: 20090811, end: 20090814
  2. HYDROCHLOROTHIAZIDE [Concomitant]
     Indication: HYPERTENSION
     Dosage: TEXT:25 MG ONCE A DAY
     Route: 065
  3. PAXIL [Concomitant]
     Indication: DEPRESSION
     Dosage: TEXT:40 MG ONCE A DAY
     Route: 065
  4. METOPROLOL [Concomitant]
     Indication: BLOOD PRESSURE
     Dosage: TEXT:50 MG ONCE A DAY
     Route: 065
  5. LEVOTHYROXINE SODIUM [Concomitant]
     Indication: THYROID DISORDER
     Dosage: TEXT:75 MCG UNSPECIFIED
     Route: 065

REACTIONS (5)
  - EATING DISORDER [None]
  - GINGIVAL ERYTHEMA [None]
  - GINGIVAL PAIN [None]
  - GINGIVAL SWELLING [None]
  - SENSITIVITY OF TEETH [None]
